FAERS Safety Report 22234859 (Version 1)
Quarter: 2023Q2

REPORT INFORMATION
  Report Type: Spontaneous
  Country: BR (occurrence: BR)
  Receive Date: 20230420
  Receipt Date: 20230420
  Transmission Date: 20230721
  Serious: Yes (Other)
  Sender: FDA-Public Use
  Company Number: BR-SA-SAC20230419000899

PATIENT
  Age: 49 Year
  Sex: Female
  Weight: 85 kg

DRUGS (3)
  1. ALLEGRA-D [Suspect]
     Active Substance: FEXOFENADINE HYDROCHLORIDE\PSEUDOEPHEDRINE HYDROCHLORIDE
     Indication: Rhinitis
     Dosage: UNK, QD
     Route: 048
     Dates: start: 20230416
  2. ALLEGRA-D [Suspect]
     Active Substance: FEXOFENADINE HYDROCHLORIDE\PSEUDOEPHEDRINE HYDROCHLORIDE
     Indication: Rhinorrhoea
  3. NIMESULIDE [Concomitant]
     Active Substance: NIMESULIDE
     Indication: Antiinflammatory therapy
     Dosage: 2 DF
     Route: 048
     Dates: start: 20230415

REACTIONS (8)
  - Mental impairment [Recovered/Resolved]
  - Cognitive disorder [Recovering/Resolving]
  - Hypoaesthesia [Recovered/Resolved]
  - Vision blurred [Recovered/Resolved]
  - Confusional state [Not Recovered/Not Resolved]
  - Hyperhidrosis [Unknown]
  - Dizziness [Recovering/Resolving]
  - Dry mouth [Not Recovered/Not Resolved]

NARRATIVE: CASE EVENT DATE: 20230416
